FAERS Safety Report 22311474 (Version 3)
Quarter: 2023Q4

REPORT INFORMATION
  Report Type: Report from Study
  Country: FR (occurrence: FR)
  Receive Date: 20230511
  Receipt Date: 20231026
  Transmission Date: 20240110
  Serious: Yes (Hospitalization)
  Sender: FDA-Public Use
  Company Number: FR-GILEAD-2023-0627882

PATIENT
  Sex: Female
  Weight: 97.6 kg

DRUGS (8)
  1. SACITUZUMAB GOVITECAN-HZIY [Suspect]
     Active Substance: SACITUZUMAB GOVITECAN-HZIY
     Indication: Triple negative breast cancer
     Dosage: 970 MG  (10 MG/KG)
     Route: 042
     Dates: start: 20230427, end: 20230427
  2. SACITUZUMAB GOVITECAN-HZIY [Suspect]
     Active Substance: SACITUZUMAB GOVITECAN-HZIY
     Dosage: 970 MG (10 MG/KG)
     Route: 042
     Dates: start: 20230504, end: 20230504
  3. PACLITAXEL [Suspect]
     Active Substance: PACLITAXEL
     Indication: Triple negative breast cancer
     Dosage: 197 MG
     Route: 042
     Dates: start: 20230314, end: 20230314
  4. PACLITAXEL [Suspect]
     Active Substance: PACLITAXEL
     Dosage: 197 MG
     Route: 042
     Dates: start: 20230321, end: 20230321
  5. PACLITAXEL [Suspect]
     Active Substance: PACLITAXEL
     Dosage: 197 MG
     Route: 042
     Dates: start: 20230328, end: 20230328
  6. PACLITAXEL [Suspect]
     Active Substance: PACLITAXEL
     Dosage: 197 MG
     Route: 042
     Dates: start: 20230411, end: 20230411
  7. CEFOTAXIME [Concomitant]
     Active Substance: CEFOTAXIME SODIUM
     Indication: Febrile bone marrow aplasia
     Dosage: 2 G
     Route: 042
     Dates: start: 20230508, end: 20230517
  8. LOPERAMIDE [Concomitant]
     Active Substance: LOPERAMIDE
     Indication: Diarrhoea
     Dosage: 2 MG
     Route: 048
     Dates: start: 20230508, end: 20230516

REACTIONS (2)
  - Febrile bone marrow aplasia [Recovered/Resolved with Sequelae]
  - General physical condition abnormal [Recovered/Resolved]

NARRATIVE: CASE EVENT DATE: 20230508
